FAERS Safety Report 9387709 (Version 1)
Quarter: 2013Q3

REPORT INFORMATION
  Report Type: Spontaneous
  Country: US (occurrence: US)
  Receive Date: 20130708
  Receipt Date: 20130708
  Transmission Date: 20140515
  Serious: No
  Sender: FDA-Public Use
  Company Number: US-ASTRAZENECA-2013SE30554

PATIENT
  Age: 65 Year
  Sex: Female

DRUGS (5)
  1. CRESTOR [Suspect]
     Route: 048
  2. LISINOPRIL [Suspect]
     Route: 065
  3. ATENOLOL [Suspect]
     Route: 065
  4. PRILOSEC [Suspect]
     Route: 048
  5. LIPITOR [Suspect]
     Route: 065

REACTIONS (3)
  - Arthralgia [Unknown]
  - Bone pain [Unknown]
  - Intentional drug misuse [Unknown]
